FAERS Safety Report 19154482 (Version 1)
Quarter: 2021Q2

REPORT INFORMATION
  Report Type: Spontaneous
  Country: GR (occurrence: GR)
  Receive Date: 20210419
  Receipt Date: 20210419
  Transmission Date: 20210717
  Serious: Yes (Other)
  Sender: FDA-Public Use
  Company Number: GR-PFIZER INC-2021376391

PATIENT
  Age: 16 Year
  Sex: Male

DRUGS (3)
  1. ELAPRASE [Concomitant]
     Active Substance: IDURSULFASE
     Dosage: UNK, WEEKLY
  2. COLISTIN [Concomitant]
     Active Substance: COLISTIN
     Indication: ACINETOBACTER SEPSIS
     Dosage: UNK
  3. TIGECYCLINE. [Suspect]
     Active Substance: TIGECYCLINE
     Indication: KLEBSIELLA INFECTION
     Dosage: UNK

REACTIONS (2)
  - Amylase increased [Recovered/Resolved]
  - Lipase increased [Recovered/Resolved]
